FAERS Safety Report 8812809 (Version 2)
Quarter: 2013Q2

REPORT INFORMATION
  Report Type: Spontaneous
  Country: US (occurrence: US)
  Receive Date: 20120927
  Receipt Date: 20130531
  Transmission Date: 20140414
  Serious: No
  Sender: FDA-Public Use
  Company Number: US-009507513-1209USA010820

PATIENT
  Age: 48 Year
  Sex: Male

DRUGS (3)
  1. PEGINTRON [Suspect]
     Indication: HEPATITIS C
     Dosage: 150 MICROGRAM, QW
     Route: 058
     Dates: start: 20120914
  2. PEGINTRON [Suspect]
     Dosage: 150 MICROGRAM, REDIPEN
     Dates: start: 20121016
  3. REBETOL [Suspect]

REACTIONS (5)
  - Rash [Recovered/Resolved]
  - Accidental exposure to product [Unknown]
  - Drug administration error [Unknown]
  - Device malfunction [Unknown]
  - Drug dose omission [Unknown]
